FAERS Safety Report 16094146 (Version 1)
Quarter: 2019Q1

REPORT INFORMATION
  Report Type: Spontaneous
  Country: US (occurrence: US)
  Receive Date: 20190320
  Receipt Date: 20190320
  Transmission Date: 20190418
  Serious: No
  Sender: FDA-Public Use
  Company Number: US-BAYER-2019-051599

PATIENT
  Age: 30 Year
  Sex: Female
  Weight: 53 kg

DRUGS (2)
  1. MIRALAX [Suspect]
     Active Substance: POLYETHYLENE GLYCOL 3350
     Indication: GASTROINTESTINAL DISORDER
     Dosage: UNK
     Route: 048
     Dates: start: 20190303, end: 20190306
  2. MIRALAX [Suspect]
     Active Substance: POLYETHYLENE GLYCOL 3350
     Indication: GASTROINTESTINAL DISORDER
     Dosage: UNK
     Route: 048
     Dates: start: 20190223, end: 20190223

REACTIONS (7)
  - Product odour abnormal [Unknown]
  - Dysgeusia [Unknown]
  - Poor quality product administered [Unknown]
  - Dysgeusia [Unknown]
  - Dysgeusia [Unknown]
  - Product odour abnormal [None]
  - Product odour abnormal [Unknown]

NARRATIVE: CASE EVENT DATE: 20190223
